FAERS Safety Report 7879265-X (Version None)
Quarter: 2011Q4

REPORT INFORMATION
  Report Type: 
  Country: None (occurrence: None)
  Receive Date: 20111101
  Receipt Date: 20111026
  Transmission Date: 20120403
  Serious: Yes (Other)
  Sender: FDA-Public Use
  Company Number: IT-JNJFOC-20110900472

PATIENT
  Age: 46 Year
  Sex: Female

DRUGS (2)
  1. ZYPREXA [Suspect]
     Indication: PRODUCT USED FOR UNKNOWN INDICATION
     Route: 048
  2. RISPERDAL [Suspect]
     Indication: PRODUCT USED FOR UNKNOWN INDICATION
     Route: 048
     Dates: start: 20110831

REACTIONS (3)
  - SELF INJURIOUS BEHAVIOUR [None]
  - INTENTIONAL OVERDOSE [None]
  - SLUGGISHNESS [None]
